FAERS Safety Report 8019588-7 (Version None)
Quarter: 2012Q1

REPORT INFORMATION
  Report Type: 
  Country: None (occurrence: None)
  Receive Date: 20120103
  Receipt Date: 20111130
  Transmission Date: 20120608
  Serious: Yes (Hospitalization)
  Sender: FDA-Public Use
  Company Number: JP-CEPHALON-2012000003

PATIENT
  Age: 59 Year
  Sex: Female

DRUGS (1)
  1. BENDAMUSTINE HCL [Suspect]
     Indication: B-CELL LYMPHOMA
     Route: 042
     Dates: start: 20110706

REACTIONS (1)
  - PNEUMONIA FUNGAL [None]
